FAERS Safety Report 25576849 (Version 1)
Quarter: 2025Q3

REPORT INFORMATION
  Report Type: Report from Study
  Country: CA (occurrence: CA)
  Receive Date: 20250718
  Receipt Date: 20250718
  Transmission Date: 20251021
  Serious: Yes (Other)
  Sender: TEVA
  Company Number: CA-TEVA-VS-3351517

PATIENT
  Age: 57 Year
  Sex: Female

DRUGS (4)
  1. DICLOFENAC SODIUM [Suspect]
     Active Substance: DICLOFENAC SODIUM
     Indication: Product used for unknown indication
     Route: 065
  2. CETIRIZINE [Concomitant]
     Active Substance: CETIRIZINE HYDROCHLORIDE
     Indication: Product used for unknown indication
     Route: 065
  3. BENADRYL [Concomitant]
     Active Substance: DIPHENHYDRAMINE HYDROCHLORIDE
     Indication: Product used for unknown indication
     Route: 065
  4. BUDESONIDE\FORMOTEROL FUMARATE [Concomitant]
     Active Substance: BUDESONIDE\FORMOTEROL FUMARATE
     Indication: Product used for unknown indication
     Route: 065

REACTIONS (18)
  - Pruritus [Unknown]
  - Sneezing [Unknown]
  - Nasal congestion [Unknown]
  - Hypertension [Unknown]
  - Paraesthesia [Unknown]
  - Condition aggravated [Unknown]
  - Rhinorrhoea [Unknown]
  - Chest discomfort [Unknown]
  - Throat irritation [Unknown]
  - Wheezing [Unknown]
  - COVID-19 [Unknown]
  - Seasonal allergy [Unknown]
  - Anaphylactic reaction [Unknown]
  - Swollen tongue [Unknown]
  - Eye swelling [Unknown]
  - Dyspnoea [Unknown]
  - Urticaria [Unknown]
  - Middle insomnia [Unknown]
